FAERS Safety Report 4647250-7 (Version None)
Quarter: 2005Q2

REPORT INFORMATION
  Report Type: 
  Country: None (occurrence: None)
  Receive Date: 20050426
  Receipt Date: 20050411
  Transmission Date: 20051028
  Serious: Yes (Other)
  Sender: FDA-Public Use
  Company Number: 2005058799

PATIENT
  Age: 67 Year
  Sex: Female
  Weight: 113.3993 kg

DRUGS (13)
  1. NEURONTIN [Suspect]
     Indication: PAIN
     Dosage: 200 MG (100 MG 2 IN 1 D) ORAL
     Route: 048
     Dates: start: 20050101, end: 20050101
  2. VENLAFAXINE HCL [Concomitant]
  3. ATENOLOL [Concomitant]
  4. FOLIC ACID [Concomitant]
  5. ALPRAZOLAM [Concomitant]
  6. POTASSIUM ACETATE [Concomitant]
  7. AMLODIPINE BESYLATE [Concomitant]
  8. PERCOGESIC (PARACETAMOL, PHENYLTOLOXAMINE CITRATE) [Concomitant]
  9. OXYCODONE HYDROCHLORIDE AND ACETAMINOPHEN [Concomitant]
  10. HYDROCODONE BITARTRATE [Concomitant]
  11. POTASSIUM ACETATE [Concomitant]
  12. LISINOPRIL [Concomitant]
  13. PROPACET 100 [Concomitant]

REACTIONS (10)
  - CEREBRAL DISORDER [None]
  - COLD SWEAT [None]
  - CRYING [None]
  - DEPRESSION [None]
  - DIZZINESS [None]
  - FEELING ABNORMAL [None]
  - HOMICIDAL IDEATION [None]
  - HOSTILITY [None]
  - SYNCOPE [None]
  - TREATMENT NONCOMPLIANCE [None]
